FAERS Safety Report 14136370 (Version 2)
Quarter: 2018Q1

REPORT INFORMATION
  Report Type: Report from Study
  Country: US (occurrence: US)
  Receive Date: 20171027
  Receipt Date: 20180123
  Transmission Date: 20180508
  Serious: No
  Sender: FDA-Public Use
  Company Number: US-AMGEN-USASL2017154600

PATIENT
  Age: 68 Year
  Sex: Female

DRUGS (2)
  1. REPATHA [Suspect]
     Active Substance: EVOLOCUMAB
     Indication: HYPERCHOLESTEROLAEMIA
     Dosage: 140 MG, Q2WK
     Route: 065
     Dates: start: 201512
  2. INSULIN [Concomitant]
     Active Substance: INSULIN NOS
     Indication: DIABETES MELLITUS
     Dosage: UNK
     Dates: start: 201512

REACTIONS (8)
  - Fibromuscular dysplasia [Unknown]
  - Tooth disorder [Unknown]
  - Fear of injection [Unknown]
  - Stress [Unknown]
  - Blood pressure increased [Recovering/Resolving]
  - Nasopharyngitis [Unknown]
  - Fatigue [Recovered/Resolved]
  - Vein disorder [Unknown]

NARRATIVE: CASE EVENT DATE: 201512
